FAERS Safety Report 6309606-6 (Version None)
Quarter: 2009Q3

REPORT INFORMATION
  Report Type: 
  Country: None (occurrence: None)
  Receive Date: 20090814
  Receipt Date: 20090810
  Transmission Date: 20100115
  Serious: Yes (Other)
  Sender: FDA-Public Use
  Company Number: AU-AMGEN-QUU340682

PATIENT
  Age: 30 Year
  Sex: Female

DRUGS (8)
  1. ARANESP [Suspect]
     Indication: RENAL FAILURE CHRONIC
     Route: 058
     Dates: start: 20080211
  2. MYCOPHENOLATE MOFETIL [Suspect]
  3. AZATHIOPRINE [Concomitant]
     Dates: start: 20080701
  4. THYMOGLOBULIN [Concomitant]
     Dates: start: 20080816, end: 20080818
  5. TACROLIMUS [Concomitant]
  6. PREDNISOLONE [Concomitant]
  7. CALCIDOL [Concomitant]
  8. BACTRIM [Concomitant]
     Dates: end: 20090105

REACTIONS (2)
  - ANAEMIA [None]
  - APLASIA PURE RED CELL [None]
